FAERS Safety Report 13748029 (Version 1)
Quarter: 2017Q3

REPORT INFORMATION
  Report Type: Report from Study
  Country: MX (occurrence: MX)
  Receive Date: 20170713
  Receipt Date: 20170713
  Transmission Date: 20171127
  Serious: Yes (Hospitalization)
  Sender: FDA-Public Use
  Company Number: PHHY2017MX097395

PATIENT
  Age: 90 Year
  Sex: Female
  Weight: 60 kg

DRUGS (9)
  1. CO-DIOVAN [Suspect]
     Active Substance: HYDROCHLOROTHIAZIDE\VALSARTAN
     Indication: HYPERTENSION
     Dosage: 1 DF (HYDROCHLOROTHIAZIDE 25 MG/ VALSARTAN 320 MG), QD
     Route: 048
     Dates: start: 2014, end: 2016
  2. CALCIUM [Suspect]
     Active Substance: CALCIUM
     Indication: OSTEOPOROSIS PROPHYLAXIS
     Dosage: (START SINCE 4 YEARS)
     Route: 048
  3. TRAYENTA [Concomitant]
     Active Substance: LINAGLIPTIN
     Indication: DIABETES MELLITUS
     Dosage: 1 DF, QOD (SINCE 4 YEARS)
     Route: 048
  4. LEVOTHYROXINE SODIUM. [Concomitant]
     Active Substance: LEVOTHYROXINE SODIUM
     Indication: HYPERTHYROIDISM
  5. ATENOLOL. [Suspect]
     Active Substance: ATENOLOL
     Indication: PRODUCT USED FOR UNKNOWN INDICATION
     Dosage: 1 DF, QD
     Route: 048
  6. CO-DIOVAN [Suspect]
     Active Substance: HYDROCHLOROTHIAZIDE\VALSARTAN
     Dosage: 1.5 DF (HYDROCHLOROTHIAZIDE 25 MG/ VALSARTAN 320 MG), QD
     Route: 048
     Dates: start: 2016
  7. VITAMIN D [Concomitant]
     Active Substance: CHOLECALCIFEROL
     Indication: CALCIUM DEFICIENCY
     Dosage: 1 DF, QD (SINCE 4 YEARS)
     Route: 048
  8. LEVOTHYROXINE SODIUM. [Concomitant]
     Active Substance: LEVOTHYROXINE SODIUM
     Indication: HYPOTHYROIDISM
     Dosage: 0.75 DF, QD (SINCE 50 YEARS)
     Route: 048
  9. PARACETAMOL [Concomitant]
     Active Substance: ACETAMINOPHEN
     Indication: ARTHRALGIA
     Dosage: 1 DF, QD (SINCE 10 YEARS)
     Route: 048

REACTIONS (2)
  - Bile duct obstruction [Unknown]
  - Cholangitis [Unknown]

NARRATIVE: CASE EVENT DATE: 201611
